FAERS Safety Report 6077026-8 (Version None)
Quarter: 2009Q1

REPORT INFORMATION
  Report Type: 
  Country: None (occurrence: None)
  Receive Date: 20090211
  Receipt Date: 20090205
  Transmission Date: 20090719
  Serious: Yes (Life-Threatening, Hospitalization)
  Sender: FDA-Public Use
  Company Number: 20085875

PATIENT
  Sex: Female

DRUGS (3)
  1. LIORESAL [Suspect]
     Indication: MUSCLE SPASTICITY
     Dosage: MCG, DAILY, INTRATHECAL
     Route: 037
  2. MORPHINE [Concomitant]
  3. CLONIDINE [Concomitant]

REACTIONS (6)
  - COMA [None]
  - HYPOPNOEA [None]
  - LOSS OF CONSCIOUSNESS [None]
  - MYELITIS TRANSVERSE [None]
  - OVERDOSE [None]
  - PARALYSIS [None]
